FAERS Safety Report 24225990 (Version 1)
Quarter: 2024Q3

REPORT INFORMATION
  Report Type: Spontaneous
  Country: US (occurrence: US)
  Receive Date: 20240820
  Receipt Date: 20240820
  Transmission Date: 20241017
  Serious: Yes (Disabling, Other)
  Sender: REGENERON
  Company Number: US-REGENERON PHARMACEUTICALS, INC.-2024-112386

PATIENT
  Sex: Female

DRUGS (1)
  1. EYLEA [Suspect]
     Active Substance: AFLIBERCEPT
     Indication: Macular degeneration
     Dosage: 2 MG, INTO RIGHT EYE AND LEFT EYE (PATIENT ON TREATMENT FOR BOTH EYES; FORMULATION: UNKNOWN)
     Dates: end: 2022

REACTIONS (3)
  - Eye infection [Unknown]
  - Blindness unilateral [Unknown]
  - Metamorphopsia [Unknown]
